FAERS Safety Report 10035939 (Version 4)
Quarter: 2014Q4

REPORT INFORMATION
  Report Type: Spontaneous
  Country: IT (occurrence: IT)
  Receive Date: 20140325
  Receipt Date: 20141024
  Transmission Date: 20150528
  Serious: Yes (Death, Hospitalization)
  Sender: FDA-Public Use
  Company Number: IT-SA-2014SA032975

PATIENT
  Age: 76 Year
  Sex: Male

DRUGS (3)
  1. ELOXATIN [Suspect]
     Active Substance: OXALIPLATIN
     Indication: COLON CANCER METASTATIC
     Route: 042
     Dates: start: 20131216, end: 20131217
  2. FLUOROURACIL TEVA [Concomitant]
     Active Substance: FLUOROURACIL
     Indication: COLON CANCER METASTATIC
     Dosage: 500 MG/10 ML SOLUTION FOR INFUSION, VIAL OF 10 ML?DOSE: 600 MG BOLUS, 1900 MG CONTINUOUS INFUSION
     Route: 042
     Dates: start: 20131216, end: 20131217
  3. CALCIUM LEVOFOLINATE [Concomitant]
     Active Substance: LEVOLEUCOVORIN CALCIUM
     Indication: COLON CANCER METASTATIC
     Dosage: VIAL
     Route: 042
     Dates: start: 20131216, end: 20131217

REACTIONS (1)
  - Hepatic failure [Fatal]

NARRATIVE: CASE EVENT DATE: 20140123
